FAERS Safety Report 8481248-6 (Version None)
Quarter: 2012Q3

REPORT INFORMATION
  Report Type: 
  Country: None (occurrence: None)
  Receive Date: 20120702
  Receipt Date: 20120621
  Transmission Date: 20120928
  Serious: Yes (Life-Threatening, Hospitalization, Other)
  Sender: FDA-Public Use
  Company Number: JP-JNJFOC-20120507225

PATIENT
  Sex: Male
  Weight: 56 kg

DRUGS (6)
  1. REMICADE [Suspect]
     Indication: COLITIS ULCERATIVE
     Route: 042
     Dates: start: 20120414
  2. CEFAZOLIN SODIUM [Concomitant]
     Indication: COLITIS ULCERATIVE
     Route: 048
  3. STEROIDS NOS [Concomitant]
     Route: 065
     Dates: start: 20110501, end: 20110708
  4. REMICADE [Suspect]
     Route: 042
     Dates: start: 20120218
  5. ASACOL [Concomitant]
     Indication: COLITIS ULCERATIVE
     Route: 048
  6. REMICADE [Suspect]
     Route: 042
     Dates: start: 20120107

REACTIONS (3)
  - LUNG DISORDER [None]
  - PNEUMONIA MYCOPLASMAL [None]
  - PULMONARY ALVEOLAR HAEMORRHAGE [None]
